FAERS Safety Report 24995060 (Version 1)
Quarter: 2025Q1

REPORT INFORMATION
  Report Type: Spontaneous
  Country: US (occurrence: None)
  Receive Date: 20250220
  Receipt Date: 20250220
  Transmission Date: 20250408
  Serious: Yes (Other)
  Sender: FDA-CTU
  Company Number: None

PATIENT
  Age: 55 Year

DRUGS (12)
  1. JAKAFI [Suspect]
     Active Substance: RUXOLITINIB
  2. ACYCLOVIR [Concomitant]
     Active Substance: ACYCLOVIR
  3. ALBUTEROL [Concomitant]
     Active Substance: ALBUTEROL
  4. AZITHROMYCIN ANHYDROUS [Concomitant]
     Active Substance: AZITHROMYCIN ANHYDROUS
  5. BACTRIM [Concomitant]
     Active Substance: SULFAMETHOXAZOLE\TRIMETHOPRIM
  6. BENZONATATE [Concomitant]
     Active Substance: BENZONATATE
  7. FLUTICASONE [Concomitant]
     Active Substance: FLUTICASONE
  8. UNSPECIFIED INGREDIENT [Concomitant]
     Active Substance: UNSPECIFIED INGREDIENT
  9. PANTOPRAZOLE [Concomitant]
     Active Substance: PANTOPRAZOLE
  10. RESTASIS [Concomitant]
     Active Substance: CYCLOSPORINE
  11. PREDNISONE [Concomitant]
     Active Substance: PREDNISONE
  12. VALGANCICLOVIR [Concomitant]
     Active Substance: VALGANCICLOVIR

REACTIONS (1)
  - Cough [None]

NARRATIVE: CASE EVENT DATE: 20250220
